FAERS Safety Report 5449793-5 (Version None)
Quarter: 2007Q3

REPORT INFORMATION
  Report Type: 
  Country: None (occurrence: None)
  Receive Date: 20070910
  Receipt Date: 20070824
  Transmission Date: 20080115
  Serious: Yes (Disabling)
  Sender: FDA-Public Use
  Company Number: 2007001638

PATIENT
  Age: 77 Year
  Sex: Female
  Weight: 77 kg

DRUGS (1)
  1. MACUGEN [Suspect]
     Indication: MACULAR DEGENERATION
     Dosage: 0.3 MG (Q6WKS), INTRA-VITREAL
     Dates: start: 20070709, end: 20070709

REACTIONS (3)
  - RETINAL DETACHMENT [None]
  - RETINAL DISORDER [None]
  - RETINAL HAEMORRHAGE [None]
